FAERS Safety Report 9469456 (Version 1)
Quarter: 2013Q3

REPORT INFORMATION
  Report Type: Spontaneous
  Country: US (occurrence: US)
  Receive Date: 20130822
  Receipt Date: 20130822
  Transmission Date: 20140515
  Serious: No
  Sender: FDA-Public Use
  Company Number: US-US-EMD SERONO, INC.-7232333

PATIENT
  Sex: Female

DRUGS (1)
  1. REBIF [Suspect]
     Indication: MULTIPLE SCLEROSIS

REACTIONS (5)
  - Influenza [Unknown]
  - Multiple sclerosis relapse [Unknown]
  - Fatigue [Unknown]
  - Injection site pain [Unknown]
  - Injection site swelling [Unknown]
